FAERS Safety Report 4797534-7 (Version None)
Quarter: 2005Q3

REPORT INFORMATION
  Report Type: 
  Country: None (occurrence: None)
  Receive Date: 20050929
  Receipt Date: 20050707
  Transmission Date: 20060218
  Serious: No
  Sender: FDA-Public Use
  Company Number: 05P-163-0305073

PATIENT
  Age: 52 Year
  Sex: Female
  Weight: 113.5 kg

DRUGS (13)
  1. HUMIRA [Suspect]
     Indication: RHEUMATOID ARTHRITIS
     Dosage: 40 MG, 1 IN 2 WK, SUBCUTANEOUS
     Route: 058
     Dates: start: 20050201
  2. CALCIUM WITH VITAMIN D [Concomitant]
  3. ESOMEPRAZOLE [Concomitant]
  4. FOLIC ACID [Concomitant]
  5. METHOTREXATE [Concomitant]
  6. HYDROXYCHLOROQUINE SULFATE [Concomitant]
  7. ULTRACET [Concomitant]
  8. MELOXICAM [Concomitant]
  9. LEVOTHYROXINE [Concomitant]
  10. ALLERGY SHOT [Concomitant]
  11. LORATADINE [Concomitant]
  12. NASAL DECONGESTANT [Concomitant]
  13. IPRATROPIUM BROMIDE [Concomitant]

REACTIONS (1)
  - DRUG EFFECT DECREASED [None]
